FAERS Safety Report 7642863-2 (Version None)
Quarter: 2011Q3

REPORT INFORMATION
  Report Type: 
  Country: None (occurrence: None)
  Receive Date: 20110728
  Receipt Date: 20110719
  Transmission Date: 20111222
  Serious: Yes (Other)
  Sender: FDA-Public Use
  Company Number: US-AMGEN-USASP2011030110

PATIENT
  Age: 54 Year
  Sex: Female
  Weight: 101.59 kg

DRUGS (1)
  1. ENBREL [Suspect]
     Indication: RHEUMATOID ARTHRITIS
     Dosage: 50 MG, QWK
     Route: 058
     Dates: start: 20050201

REACTIONS (14)
  - LOCAL SWELLING [None]
  - FIBROMYALGIA [None]
  - OSTEOARTHRITIS [None]
  - ARTHRALGIA [None]
  - PAIN IN EXTREMITY [None]
  - JOINT SWELLING [None]
  - NECK PAIN [None]
  - MUSCULOSKELETAL STIFFNESS [None]
  - INJECTION SITE HAEMATOMA [None]
  - DRUG EFFECT DECREASED [None]
  - OEDEMA PERIPHERAL [None]
  - RESPIRATORY TRACT INFECTION [None]
  - PAIN [None]
  - INJECTION SITE PAIN [None]
